FAERS Safety Report 11879429 (Version 2)
Quarter: 2016Q1

REPORT INFORMATION
  Report Type: Report from Study
  Country: FR (occurrence: FR)
  Receive Date: 20151230
  Receipt Date: 20160205
  Transmission Date: 20160526
  Serious: Yes (Hospitalization)
  Sender: FDA-Public Use
  Company Number: FR-JNJFOC-20151220884

PATIENT
  Age: 65 Year
  Sex: Male
  Weight: 93 kg

DRUGS (2)
  1. TRABECTEDIN [Suspect]
     Active Substance: TRABECTEDIN
     Route: 042
  2. TRABECTEDIN [Suspect]
     Active Substance: TRABECTEDIN
     Indication: SOFT TISSUE SARCOMA
     Route: 042
     Dates: start: 20151214, end: 20151215

REACTIONS (3)
  - Acute kidney injury [Recovered/Resolved]
  - Weight decreased [Recovered/Resolved]
  - Acute hepatic failure [Recovered/Resolved]

NARRATIVE: CASE EVENT DATE: 20151221
